FAERS Safety Report 8082672-6 (Version None)
Quarter: 2012Q1

REPORT INFORMATION
  Report Type: 
  Country: None (occurrence: None)
  Receive Date: 20120127
  Receipt Date: 20110224
  Transmission Date: 20120608
  Serious: No
  Sender: FDA-Public Use
  Company Number: US-ABBOTT-11P-163-0707538-00

PATIENT
  Age: 30 Year
  Sex: Female

DRUGS (8)
  1. HUMIRA [Suspect]
     Indication: CROHN'S DISEASE
     Dates: start: 20101228
  2. BENTYL [Concomitant]
     Indication: PAIN
     Dosage: USUALLY TAKES AT BEDTIME
  3. AMITRIPTYLINE HCL [Concomitant]
     Indication: INSOMNIA
     Dosage: 1/2 TABLET DAILY
  4. PROTONICS [Concomitant]
     Indication: PRODUCT USED FOR UNKNOWN INDICATION
  5. VITAMIN D [Concomitant]
     Indication: VITAMIN SUPPLEMENTATION
  6. CALCIUM [Concomitant]
     Indication: MINERAL SUPPLEMENTATION
     Dosage: DAILY
  7. IMURAN [Concomitant]
     Indication: CROHN'S DISEASE
     Dosage: 25 MG ONE DAY/50 MG NEXT DAY
  8. IRON [Concomitant]
     Indication: PRODUCT USED FOR UNKNOWN INDICATION
     Dosage: DAILY

REACTIONS (1)
  - ABDOMINAL PAIN [None]
